FAERS Safety Report 5046406-1 (Version None)
Quarter: 2006Q2

REPORT INFORMATION
  Report Type: 
  Country: None (occurrence: None)
  Receive Date: 20060629
  Receipt Date: 20060619
  Transmission Date: 20061013
  Serious: Yes (Life-Threatening)
  Sender: FDA-Public Use
  Company Number: S06-USA-02442-01

PATIENT
  Age: 55 Year
  Sex: Female

DRUGS (4)
  1. CAMPRAL [Suspect]
     Indication: ALCOHOLISM
     Dosage: 666 MG TID PO
     Route: 048
     Dates: start: 20060531, end: 20060531
  2. ZOLOFT [Concomitant]
  3. ATIVAN [Concomitant]
  4. GEODON [Concomitant]

REACTIONS (1)
  - ANAPHYLACTIC REACTION [None]
